FAERS Safety Report 9021812 (Version 1)
Quarter: 2013Q1

REPORT INFORMATION
  Report Type: Spontaneous
  Country: US (occurrence: US)
  Receive Date: 20130119
  Receipt Date: 20130119
  Transmission Date: 20140127
  Serious: No
  Sender: FDA-Public Use
  Company Number: US-ALLERGAN-1210306US

PATIENT
  Age: 71 Year
  Sex: Female

DRUGS (2)
  1. BOTOX COSMETIC [Suspect]
     Indication: SKIN WRINKLING
     Dosage: UNK
     Route: 030
     Dates: start: 201205, end: 201205
  2. BOTOX COSMETIC [Suspect]
     Dosage: UNK
     Route: 030
     Dates: start: 201205, end: 201205

REACTIONS (6)
  - Mastication disorder [Recovered/Resolved]
  - Muscular weakness [Recovering/Resolving]
  - Speech disorder [Recovered/Resolved]
  - Muscular weakness [Recovering/Resolving]
  - Drug ineffective [Unknown]
  - Off label use [Unknown]
